FAERS Safety Report 9056059 (Version 2)
Quarter: 2013Q1

REPORT INFORMATION
  Report Type: Spontaneous
  Country: ES (occurrence: ES)
  Receive Date: 20130205
  Receipt Date: 20130308
  Transmission Date: 20140127
  Serious: Yes (Death, Hospitalization, Other)
  Sender: FDA-Public Use
  Company Number: PHHY2013ES008911

PATIENT
  Age: 66 Year
  Sex: Male

DRUGS (7)
  1. FENTANYL [Suspect]
     Indication: ABDOMINAL PAIN
     Dosage: 12 UG, Q72H
     Route: 062
     Dates: start: 20101123
  2. IMATINIB [Interacting]
     Indication: METASTASES TO PERITONEUM
     Dosage: 400 MG, UNK
  3. IMATINIB [Interacting]
     Dosage: 800 MG, UNK
  4. TAMSULOSIN [Concomitant]
     Dosage: 0.4 MG/24 HOURS
  5. OMEPRAZOLE [Concomitant]
     Dosage: 20 MG/24 HOURS
  6. MAGNESIUM CHELATE [Concomitant]
  7. SALINE [Concomitant]
     Route: 048

REACTIONS (14)
  - Hepatic encephalopathy [Fatal]
  - Hepatotoxicity [Unknown]
  - Vomiting [Fatal]
  - Mental impairment [Fatal]
  - Altered state of consciousness [Fatal]
  - General physical health deterioration [Fatal]
  - Hepatic function abnormal [Unknown]
  - Nervous system disorder [Fatal]
  - Hypernatraemia [Unknown]
  - Respiratory alkalosis [Unknown]
  - Hyperventilation [Unknown]
  - Urinary tract infection [Unknown]
  - Constipation [Unknown]
  - Drug interaction [Unknown]
